FAERS Safety Report 13048114 (Version 1)
Quarter: 2016Q4

REPORT INFORMATION
  Report Type: Spontaneous
  Country: US (occurrence: US)
  Receive Date: 20161220
  Receipt Date: 20161220
  Transmission Date: 20170207
  Serious: Yes (Other)
  Sender: FDA-Public Use
  Company Number: None

PATIENT
  Age: 21 Year
  Sex: Male
  Weight: 68.5 kg

DRUGS (2)
  1. XARELTO [Suspect]
     Active Substance: RIVAROXABAN
     Indication: DEEP VEIN THROMBOSIS
     Route: 048
     Dates: start: 20161202, end: 20161219
  2. CIPROFLOXACIN. [Concomitant]
     Active Substance: CIPROFLOXACIN

REACTIONS (11)
  - Haematuria [None]
  - Chills [None]
  - Abdominal pain [None]
  - Pollakiuria [None]
  - Vomiting [None]
  - Dysuria [None]
  - Flank pain [None]
  - Nausea [None]
  - Genital discharge [None]
  - Micturition urgency [None]
  - Pyrexia [None]

NARRATIVE: CASE EVENT DATE: 20161219
